FAERS Safety Report 15008729 (Version 1)
Quarter: 2018Q2

REPORT INFORMATION
  Report Type: Spontaneous
  Country: US (occurrence: US)
  Receive Date: 20180522
  Receipt Date: 20180522
  Transmission Date: 20180711
  Serious: Yes (Death)
  Sender: FDA-Public Use
  Company Number: None

PATIENT
  Age: 66 Year
  Sex: Female

DRUGS (1)
  1. SOLIRIS [Suspect]
     Active Substance: ECULIZUMAB
     Indication: PAROXYSMAL NOCTURNAL HAEMOGLOBINURIA
     Dosage: ?          OTHER FREQUENCY:Q 2 WEEKS;OTHER ROUTE:INFUSED?
     Dates: start: 20180315, end: 20180516

REACTIONS (1)
  - Death [None]

NARRATIVE: CASE EVENT DATE: 20180516
